FAERS Safety Report 7013306-7 (Version None)
Quarter: 2010Q3

REPORT INFORMATION
  Report Type: 
  Country: None (occurrence: None)
  Receive Date: 20100924
  Receipt Date: 20100914
  Transmission Date: 20110219
  Serious: Yes (Other)
  Sender: FDA-Public Use
  Company Number: BR-JNJFOC-20100905852

PATIENT
  Sex: Male
  Weight: 1.6 kg

DRUGS (1)
  1. INFLIXIMAB, RECOMBINANT [Suspect]
     Indication: DRUG EXPOSURE DURING PREGNANCY
     Route: 064

REACTIONS (4)
  - ACUTE RESPIRATORY FAILURE [None]
  - PREMATURE BABY [None]
  - RESPIRATORY DISORDER [None]
  - SMALL FOR DATES BABY [None]
